FAERS Safety Report 13562403 (Version 2)
Quarter: 2017Q2

REPORT INFORMATION
  Report Type: Report from Study
  Country: None (occurrence: US)
  Receive Date: 20170519
  Receipt Date: 20170612
  Transmission Date: 20170830
  Serious: Yes (Hospitalization, Other)
  Sender: FDA-Public Use
  Company Number: US-ABBVIE-17K-163-1930392-00

PATIENT
  Age: 74 Year
  Sex: Female

DRUGS (1)
  1. HUMIRA [Suspect]
     Active Substance: ADALIMUMAB
     Indication: CROHN^S DISEASE
     Route: 058
     Dates: end: 201703

REACTIONS (5)
  - Clostridium difficile infection [Unknown]
  - Enteritis infectious [Unknown]
  - Intestinal prolapse [Unknown]
  - Small intestinal stenosis [Not Recovered/Not Resolved]
  - Incision site infection [Unknown]

NARRATIVE: CASE EVENT DATE: 201704
